FAERS Safety Report 5334641-4 (Version None)
Quarter: 2007Q2

REPORT INFORMATION
  Report Type: 
  Country: None (occurrence: None)
  Receive Date: 20070525
  Receipt Date: 20070517
  Transmission Date: 20071010
  Serious: Yes (Hospitalization, Other)
  Sender: FDA-Public Use
  Company Number: B0360453A

PATIENT
  Sex: Male

DRUGS (4)
  1. PAROXETINE HYDROCHLORIDE [Suspect]
     Route: 065
     Dates: start: 19961101, end: 20021001
  2. DIAZEPAM [Suspect]
     Dosage: 5MG AS REQUIRED
     Route: 065
  3. THIORIDAZINE HCL [Concomitant]
     Dosage: 25MG TWICE PER DAY
     Route: 065
  4. ZOPICLONE [Concomitant]
     Dosage: 7.5MG AT NIGHT
     Route: 065

REACTIONS (6)
  - ANXIETY [None]
  - DEPRESSION [None]
  - DRUG WITHDRAWAL SYNDROME [None]
  - INSOMNIA [None]
  - OVERDOSE [None]
  - SUICIDAL IDEATION [None]
